FAERS Safety Report 9070992 (Version 2)
Quarter: 2013Q1

REPORT INFORMATION
  Report Type: Spontaneous
  Country: FR (occurrence: FR)
  Receive Date: 20130129
  Receipt Date: 20130301
  Transmission Date: 20140127
  Serious: Yes (Death, Hospitalization)
  Sender: FDA-Public Use
  Company Number: FR-GLAXOSMITHKLINE-B0861429A

PATIENT
  Age: 75 None
  Sex: Female

DRUGS (11)
  1. ZELITREX [Suspect]
     Indication: PRODUCT USED FOR UNKNOWN INDICATION
     Dosage: 500MG TWICE PER DAY
     Route: 048
     Dates: start: 20120908, end: 20121119
  2. VFEND [Suspect]
     Indication: PRODUCT USED FOR UNKNOWN INDICATION
     Dosage: 200MG TWICE PER DAY
     Route: 048
     Dates: start: 20120925, end: 20121119
  3. PURINETHOL [Suspect]
     Indication: PRODUCT USED FOR UNKNOWN INDICATION
     Dosage: 50MG TWICE PER DAY
     Route: 048
     Dates: start: 20121025, end: 20121119
  4. NOVATREX [Suspect]
     Indication: PRODUCT USED FOR UNKNOWN INDICATION
     Route: 048
     Dates: start: 20121025, end: 20121119
  5. METFORMINE [Concomitant]
     Dosage: 850MG PER DAY
     Route: 048
     Dates: end: 20121119
  6. PENTACARINAT [Concomitant]
     Route: 048
     Dates: end: 20121119
  7. NOVORAPID [Concomitant]
     Route: 058
     Dates: end: 20121119
  8. EUPANTOL [Concomitant]
     Dosage: 40MG PER DAY
     Route: 048
     Dates: end: 20121119
  9. DEXAMETHASONE [Concomitant]
     Indication: ACUTE LYMPHOCYTIC LEUKAEMIA
     Dates: start: 20120907
  10. VINCRISTINE [Concomitant]
     Indication: ACUTE LYMPHOCYTIC LEUKAEMIA
  11. IDARUBICINE [Concomitant]
     Indication: ACUTE LYMPHOCYTIC LEUKAEMIA

REACTIONS (3)
  - Hepatitis acute [Fatal]
  - Hepatocellular injury [Fatal]
  - Jaundice [Fatal]
